FAERS Safety Report 8569230-1 (Version None)
Quarter: 2012Q3

REPORT INFORMATION
  Report Type: 
  Country: None (occurrence: None)
  Receive Date: 20120803
  Receipt Date: 20120531
  Transmission Date: 20120928
  Serious: No
  Sender: FDA-Public Use
  Company Number: US-ABBOTT-12P-163-0941042-00

PATIENT
  Sex: Female
  Weight: 47.67 kg

DRUGS (6)
  1. NIASPAN [Suspect]
     Indication: CORONARY ARTERY DISEASE
     Dosage: AT BEDTIME
     Route: 048
     Dates: start: 20120524
  2. VALIUM [Concomitant]
     Indication: PRODUCT USED FOR UNKNOWN INDICATION
     Route: 048
  3. ASPIRIN [Concomitant]
     Indication: PRODUCT USED FOR UNKNOWN INDICATION
     Dosage: AT BEDTIME
     Route: 048
  4. NIASPAN [Suspect]
     Indication: BLOOD CHOLESTEROL INCREASED
     Dosage: AT BEDTIME X 7DAYS
     Route: 048
     Dates: start: 20120517, end: 20120523
  5. LOVAZA [Concomitant]
     Indication: PRODUCT USED FOR UNKNOWN INDICATION
     Dosage: AT BEDTIME
     Route: 048
  6. TRAZODONE HYDROCHLORIDE [Concomitant]
     Indication: SLEEP DISORDER
     Dosage: 1/2 TABLET AT BEDTIME
     Route: 048

REACTIONS (5)
  - DYSPEPSIA [None]
  - VISUAL IMPAIRMENT [None]
  - DECREASED APPETITE [None]
  - DIZZINESS [None]
  - ASTHENIA [None]
